FAERS Safety Report 15152447 (Version 1)
Quarter: 2018Q3

REPORT INFORMATION
  Report Type: Spontaneous
  Country: DE (occurrence: DE)
  Receive Date: 20180717
  Receipt Date: 20180717
  Transmission Date: 20181010
  Serious: Yes (Hospitalization)
  Sender: FDA-Public Use
  Company Number: DE-WEST-WARD PHARMACEUTICALS CORP.-DE-H14001-18-05706

PATIENT
  Age: 73 Year
  Sex: Female
  Weight: 85 kg

DRUGS (10)
  1. GRANISETRON HYDROCHLORIDE. [Suspect]
     Active Substance: GRANISETRON HYDROCHLORIDE
     Indication: VOMITING
  2. GRANISETRON HYDROCHLORIDE. [Suspect]
     Active Substance: GRANISETRON HYDROCHLORIDE
     Indication: COLORECTAL CANCER
     Route: 042
     Dates: start: 20140521, end: 20140521
  3. FOLINIC ACID [Concomitant]
     Active Substance: LEUCOVORIN
     Indication: COLORECTAL CANCER
     Route: 042
     Dates: start: 20140324, end: 20140606
  4. IRINOTECAN [Concomitant]
     Active Substance: IRINOTECAN
     Indication: COLORECTAL CANCER
     Route: 042
     Dates: start: 20140324, end: 20140604
  5. PREDNISOLON [Concomitant]
     Active Substance: PREDNISOLONE
     Indication: INFECTION
     Dosage: LOCAL UNDER THE BREAST (2)
     Route: 065
     Dates: start: 20150430, end: 20150504
  6. CLOTRIMAZOL [Concomitant]
     Active Substance: CLOTRIMAZOLE
     Indication: INFECTION
     Dosage: LOCAL UNDER THE BREAST (2)
     Route: 065
     Dates: start: 20150430, end: 20150504
  7. TRIAMTEREN [Concomitant]
     Active Substance: TRIAMTERENE
     Indication: HYPERTENSION
     Route: 048
     Dates: start: 20140226
  8. BEVACIZUMAB. [Suspect]
     Active Substance: BEVACIZUMAB
     Indication: COLORECTAL CANCER METASTATIC
     Route: 042
     Dates: start: 20140521
  9. 5?FU [Concomitant]
     Active Substance: FLUOROURACIL
     Indication: COLORECTAL CANCER
     Route: 042
     Dates: start: 20140324, end: 20140606
  10. BEVACIZUMAB. [Suspect]
     Active Substance: BEVACIZUMAB
     Route: 042
     Dates: start: 20140324

REACTIONS (2)
  - Constipation [Recovered/Resolved]
  - Alopecia [Not Recovered/Not Resolved]

NARRATIVE: CASE EVENT DATE: 20140507
